FAERS Safety Report 17847126 (Version 2)
Quarter: 2020Q3

REPORT INFORMATION
  Report Type: Spontaneous
  Country: AR (occurrence: AR)
  Receive Date: 20200601
  Receipt Date: 20200711
  Transmission Date: 20201103
  Serious: Yes (Other)
  Sender: FDA-Public Use
  Company Number: NVSC2020AR150665

PATIENT
  Age: 49 Year
  Sex: Female

DRUGS (2)
  1. SECUKINUMAB. [Suspect]
     Active Substance: SECUKINUMAB
     Indication: PSORIASIS
     Dosage: UNK (APPROXIMATELY 10 MONTHS AGO)
     Route: 065
  2. SECUKINUMAB. [Suspect]
     Active Substance: SECUKINUMAB
     Indication: PSORIATIC ARTHROPATHY

REACTIONS (4)
  - COVID-19 [Recovered/Resolved]
  - Pyrexia [Recovered/Resolved]
  - Asthenia [Recovered/Resolved]
  - Arthralgia [Recovered/Resolved]

NARRATIVE: CASE EVENT DATE: 20200409
